FAERS Safety Report 4641291-1 (Version None)
Quarter: 2005Q2

REPORT INFORMATION
  Report Type: 
  Country: None (occurrence: None)
  Receive Date: 20050421
  Receipt Date: 20050413
  Transmission Date: 20051028
  Serious: Yes (Hospitalization)
  Sender: FDA-Public Use
  Company Number: PHNU2005DE01640

PATIENT
  Sex: Female

DRUGS (2)
  1. DIPYRONE TAB [Suspect]
  2. VOLTAREN [Suspect]

REACTIONS (2)
  - AGRANULOCYTOSIS [None]
  - LEUKAEMIA [None]
